FAERS Safety Report 9100129 (Version 1)
Quarter: 2013Q1

REPORT INFORMATION
  Report Type: Spontaneous
  Country: US (occurrence: US)
  Receive Date: 20130215
  Receipt Date: 20130215
  Transmission Date: 20140127
  Serious: No
  Sender: FDA-Public Use
  Company Number: US-PFIZER INC-2013056953

PATIENT
  Age: 48 Year
  Sex: Female
  Weight: 54.42 kg

DRUGS (5)
  1. NEURONTIN [Suspect]
     Indication: NEUROPATHY PERIPHERAL
     Dosage: 300 MG CAPSULE, 2X/DAY
     Route: 048
  2. NEURONTIN [Suspect]
     Indication: FIBROMYALGIA
  3. SYNTHROID [Concomitant]
     Dosage: UNK
  4. ESTRADIOL [Concomitant]
     Dosage: UNK
  5. FIORICET [Concomitant]
     Dosage: UNK

REACTIONS (2)
  - Off label use [Not Recovered/Not Resolved]
  - Drug ineffective for unapproved indication [Unknown]
